FAERS Safety Report 6381865-3 (Version None)
Quarter: 2009Q3

REPORT INFORMATION
  Report Type: 
  Country: None (occurrence: None)
  Receive Date: 20090925
  Receipt Date: 20090917
  Transmission Date: 20100115
  Serious: Yes (Other)
  Sender: FDA-Public Use
  Company Number: DSA_41656_2009

PATIENT
  Sex: Male

DRUGS (6)
  1. XENAZINE [Suspect]
     Indication: HUNTINGTON'S CHOREA
     Dosage: (12.5 MG BID)
     Dates: start: 20090101, end: 20090917
  2. PROZAC /00724402/ [Concomitant]
  3. PERCOCET [Concomitant]
  4. HEPARIN [Concomitant]
  5. TYLENOL (CAPLET) [Concomitant]
  6. PREVACID [Concomitant]

REACTIONS (4)
  - APPETITE DISORDER [None]
  - DEPRESSION [None]
  - SOCIAL AVOIDANT BEHAVIOUR [None]
  - SUICIDAL IDEATION [None]
